FAERS Safety Report 19155357 (Version 1)
Quarter: 2021Q2

REPORT INFORMATION
  Report Type: Spontaneous
  Country: US (occurrence: US)
  Receive Date: 20210419
  Receipt Date: 20210419
  Transmission Date: 20210717
  Serious: Yes (Other)
  Sender: FDA-Public Use
  Company Number: NVSC2021US086320

PATIENT

DRUGS (2)
  1. CARBOPLATIN. [Suspect]
     Active Substance: CARBOPLATIN
     Indication: GANGLIOGLIOMA
     Dosage: UNK (1ST LINE)
     Route: 065
  2. VINCRISTINE [Suspect]
     Active Substance: VINCRISTINE
     Indication: GANGLIOGLIOMA
     Dosage: UNK (1ST LINE)
     Route: 065

REACTIONS (2)
  - Malignant neoplasm progression [Unknown]
  - Ganglioglioma [Unknown]
